FAERS Safety Report 25488297 (Version 1)
Quarter: 2025Q2

REPORT INFORMATION
  Report Type: Spontaneous
  Country: FR (occurrence: FR)
  Receive Date: 20250627
  Receipt Date: 20250627
  Transmission Date: 20250717
  Serious: Yes (Hospitalization)
  Sender: TEVA
  Company Number: None

PATIENT
  Age: 74 Year
  Sex: Male
  Weight: 64 kg

DRUGS (20)
  1. PEMETREXED [Suspect]
     Active Substance: PEMETREXED
     Indication: Bronchial carcinoma
     Route: 042
     Dates: start: 20250416, end: 20250416
  2. DOXYCYCLINE [Concomitant]
     Active Substance: DOXYCYCLINE
     Indication: Product used for unknown indication
     Dosage: 1 TABLET AT 8 A.M.
     Route: 048
  3. ONDANSETRON [Concomitant]
     Active Substance: ONDANSETRON
     Indication: Prophylaxis of nausea and vomiting
     Route: 042
     Dates: start: 20250416, end: 20250416
  4. CARBOPLATIN [Suspect]
     Active Substance: CARBOPLATIN
     Indication: Bronchial carcinoma
     Route: 042
     Dates: start: 20250416, end: 20250416
  5. ACETAMINOPHEN [Concomitant]
     Active Substance: ACETAMINOPHEN
     Indication: Pain
     Route: 048
     Dates: start: 20250416, end: 20250416
  6. LANSOPRAZOLE [Concomitant]
     Active Substance: LANSOPRAZOLE
     Indication: Product used for unknown indication
     Dosage: 2 CPR AT 6 P.M.
     Route: 048
  7. INNOHEP [Concomitant]
     Active Substance: TINZAPARIN SODIUM
     Indication: Product used for unknown indication
     Dosage: 11,000 IU AT 6 P.M., 14,000 IU ANTI-XA/0.7 ML
     Route: 058
  8. FOLIC ACID [Concomitant]
     Active Substance: FOLIC ACID
     Indication: Product used for unknown indication
     Dosage: 1 TABLET / DAY
     Route: 048
  9. ESCITALOPRAM OXALATE [Concomitant]
     Active Substance: ESCITALOPRAM OXALATE
     Indication: Product used for unknown indication
     Dosage: 1 TABLET / DAY, FILM-COATED TABLET, SCORED
     Route: 048
  10. RYBREVANT [Suspect]
     Active Substance: AMIVANTAMAB-VMJW
     Indication: Bronchial carcinoma
     Route: 042
     Dates: start: 20250417, end: 20250417
  11. RYBREVANT [Suspect]
     Active Substance: AMIVANTAMAB-VMJW
     Indication: Bronchial carcinoma
     Route: 042
     Dates: start: 20250423, end: 20250423
  12. RYBREVANT [Suspect]
     Active Substance: AMIVANTAMAB-VMJW
     Indication: Bronchial carcinoma
     Route: 042
     Dates: start: 20250416, end: 20250416
  13. INSULIN ASPART [Concomitant]
     Active Substance: INSULIN ASPART
     Indication: Diabetes mellitus
     Dosage: 10 IU AT 8 A.M. AND 20 IU AT 12 P.M., 100 U/ML
     Route: 058
  14. RISPERDAL [Concomitant]
     Active Substance: RISPERIDONE
     Indication: Product used for unknown indication
     Dosage: 1 TABLET / DAY, FILM-COATED TABLET, SCORED
     Route: 048
  15. INSULIN ASPART [Concomitant]
     Active Substance: INSULIN ASPART
     Indication: Diabetes mellitus
     Route: 058
  16. PREDNISONE [Concomitant]
     Active Substance: PREDNISONE
     Indication: Prophylaxis of nausea and vomiting
     Dosage: 1 TABLET AT 8 A.M., SCORED TABLET
     Route: 048
  17. DEXCHLORPHENIRAMINE MALEATE [Concomitant]
     Active Substance: DEXCHLORPHENIRAMINE MALEATE
     Indication: Antiallergic therapy
     Route: 048
     Dates: start: 20250416, end: 20250416
  18. APREPITANT [Concomitant]
     Active Substance: APREPITANT
     Indication: Prophylaxis of nausea and vomiting
     Route: 048
     Dates: start: 20250416, end: 20250416
  19. RAMIPRIL [Concomitant]
     Active Substance: RAMIPRIL
     Indication: Hypertension
     Dosage: 2 TABLETS AT 8 A.M., SCORED TABLET
     Route: 048
  20. DEXAMETHASONE [Concomitant]
     Active Substance: DEXAMETHASONE
     Indication: Prophylaxis of nausea and vomiting
     Route: 042
     Dates: start: 20250416, end: 20250416

REACTIONS (4)
  - Stomatitis [Recovered/Resolved]
  - Neutropenia [Recovered/Resolved]
  - Acute kidney injury [Recovered/Resolved]
  - Thrombocytopenia [Recovered/Resolved]

NARRATIVE: CASE EVENT DATE: 20250423
